FAERS Safety Report 10184813 (Version 1)
Quarter: 2014Q2

REPORT INFORMATION
  Report Type: Spontaneous
  Country: DE (occurrence: DE)
  Receive Date: 20140521
  Receipt Date: 20140521
  Transmission Date: 20141212
  Serious: Yes (Other)
  Sender: FDA-Public Use
  Company Number: DE-JNJFOC-20140505074

PATIENT
  Age: 4 Year
  Sex: Male

DRUGS (7)
  1. DOXORUBICIN [Suspect]
     Indication: RHABDOID TUMOUR
     Route: 042
  2. CYCLOPHOSPHAMID [Suspect]
     Indication: RHABDOID TUMOUR
     Route: 065
  3. ETOPOSID [Suspect]
     Indication: RHABDOID TUMOUR
     Route: 065
  4. IFOSFAMID [Suspect]
     Indication: RHABDOID TUMOUR
     Route: 065
  5. CARBOPLATIN [Suspect]
     Indication: RHABDOID TUMOUR
     Route: 065
  6. ACTINOMYCIN D [Suspect]
     Indication: RHABDOID TUMOUR
     Route: 065
  7. RADIOTHERAPY [Suspect]
     Indication: RHABDOID TUMOUR
     Route: 065

REACTIONS (3)
  - Enterocolitis [Unknown]
  - Mucosal inflammation [Unknown]
  - Off label use [Unknown]
